FAERS Safety Report 9483926 (Version 2)
Quarter: 2013Q3

REPORT INFORMATION
  Report Type: Report from Study
  Country: CZ (occurrence: CZ)
  Receive Date: 20130828
  Receipt Date: 20130828
  Transmission Date: 20140515
  Serious: Yes (Hospitalization, Other)
  Sender: FDA-Public Use
  Company Number: PHHO2010CZ08616

PATIENT
  Age: 74 Year
  Sex: Male
  Weight: 93 kg

DRUGS (6)
  1. ALISKIREN [Suspect]
     Indication: CARDIOVASCULAR DISORDER
     Route: 048
     Dates: start: 20090421, end: 20100607
  2. TRITACE [Suspect]
     Indication: HYPERURICAEMIA
     Dosage: 10 MG, UNK
     Dates: start: 2008
  3. SIMGAL [Concomitant]
     Indication: DYSLIPIDAEMIA
     Dosage: 20 MG, UNK
     Dates: start: 2006
  4. LOKREN [Concomitant]
     Indication: HYPERTENSION
     Dosage: 20 MG, UNK
     Dates: start: 2006
  5. DIAPREL [Concomitant]
     Indication: DIABETES MELLITUS
  6. AGEN [Concomitant]
     Indication: HYPERTENSION
     Dosage: 10 MG, UNK
     Dates: start: 2009

REACTIONS (6)
  - Diabetic nephropathy [Not Recovered/Not Resolved]
  - Blood creatinine increased [Unknown]
  - Proteinuria [Not Recovered/Not Resolved]
  - Renal impairment [Not Recovered/Not Resolved]
  - Disease progression [Unknown]
  - Renal failure chronic [Not Recovered/Not Resolved]
